FAERS Safety Report 12110854 (Version 2)
Quarter: 2016Q1

REPORT INFORMATION
  Report Type: Report from Study
  Country: JP (occurrence: JP)
  Receive Date: 20160224
  Receipt Date: 20160316
  Transmission Date: 20160526
  Serious: Yes (Hospitalization)
  Sender: FDA-Public Use
  Company Number: JP-JNJFOC-20160218705

PATIENT
  Age: 68 Year
  Sex: Male
  Weight: 84.1 kg

DRUGS (7)
  1. IBRUTINIB [Suspect]
     Active Substance: IBRUTINIB
     Indication: MANTLE CELL LYMPHOMA
     Route: 048
     Dates: start: 20141022, end: 20160218
  2. BRONUCK [Concomitant]
     Active Substance: BROMFENAC SODIUM
     Indication: PROPHYLAXIS
     Dosage: PROPER QUANTITY DROPS
     Route: 047
     Dates: start: 20150105
  3. HYALEIN [Concomitant]
     Active Substance: HYALURONATE SODIUM
     Indication: DRY EYE
     Dosage: PROPER QUANTITY DROPS
     Route: 047
     Dates: start: 20151210
  4. FEBURIC [Concomitant]
     Active Substance: FEBUXOSTAT
     Indication: HYPERURICAEMIA
     Route: 048
     Dates: start: 2012
  5. GENTACIN [Concomitant]
     Active Substance: GENTAMICIN SULFATE
     Indication: PARONYCHIA
     Dosage: PROPER QUANTITY
     Route: 061
     Dates: start: 20150210
  6. FUCIDIN LEO [Concomitant]
     Active Substance: FUSIDATE SODIUM
     Indication: NAIL RIDGING
     Dosage: PROPER QUANTITY
     Route: 061
     Dates: start: 20151025
  7. AMLODIPINE [Concomitant]
     Active Substance: AMLODIPINE BESYLATE
     Indication: HYPERTENSION
     Route: 048
     Dates: start: 2004

REACTIONS (1)
  - Syncope [Recovered/Resolved]

NARRATIVE: CASE EVENT DATE: 20160218
